FAERS Safety Report 9500646 (Version 1)
Quarter: 2013Q3

REPORT INFORMATION
  Report Type: Spontaneous
  Country: US (occurrence: US)
  Receive Date: 20130905
  Receipt Date: 20130905
  Transmission Date: 20140515
  Serious: Yes (Life-Threatening, Other)
  Sender: FDA-Public Use
  Company Number: US-JNJFOC-20130812602

PATIENT
  Sex: 0

DRUGS (20)
  1. DOXORUBICIN [Suspect]
     Indication: PERIPHERAL T-CELL LYMPHOMA UNSPECIFIED
     Dosage: DAY 1
     Route: 042
  2. DOXORUBICIN [Suspect]
     Indication: B-CELL LYMPHOMA
     Dosage: DAY 1
     Route: 042
  3. DOXORUBICIN [Suspect]
     Indication: DIFFUSE LARGE B-CELL LYMPHOMA
     Dosage: DAY 1
     Route: 042
  4. DOXORUBICIN [Suspect]
     Indication: ANAPLASTIC LARGE CELL LYMPHOMA T- AND NULL-CELL TYPES
     Dosage: DAY 1
     Route: 042
  5. CYCLOPHOSPHAMIDE [Suspect]
     Indication: PERIPHERAL T-CELL LYMPHOMA UNSPECIFIED
     Dosage: DAY 1
     Route: 042
  6. CYCLOPHOSPHAMIDE [Suspect]
     Indication: B-CELL LYMPHOMA
     Dosage: DAY 1
     Route: 042
  7. CYCLOPHOSPHAMIDE [Suspect]
     Indication: DIFFUSE LARGE B-CELL LYMPHOMA
     Dosage: DAY 1
     Route: 042
  8. CYCLOPHOSPHAMIDE [Suspect]
     Indication: ANAPLASTIC LARGE CELL LYMPHOMA T- AND NULL-CELL TYPES
     Dosage: DAY 1
     Route: 042
  9. VINCRISTINE SULFATE [Suspect]
     Indication: PERIPHERAL T-CELL LYMPHOMA UNSPECIFIED
     Dosage: DAY 1
     Route: 042
  10. VINCRISTINE SULFATE [Suspect]
     Indication: B-CELL LYMPHOMA
     Dosage: DAY 1
     Route: 042
  11. VINCRISTINE SULFATE [Suspect]
     Indication: DIFFUSE LARGE B-CELL LYMPHOMA
     Dosage: DAY 1
     Route: 042
  12. VINCRISTINE SULFATE [Suspect]
     Indication: ANAPLASTIC LARGE CELL LYMPHOMA T- AND NULL-CELL TYPES
     Dosage: DAY 1
     Route: 042
  13. PREDNISONE [Suspect]
     Indication: PERIPHERAL T-CELL LYMPHOMA UNSPECIFIED
     Dosage: FROM DAY 1-5
     Route: 048
  14. PREDNISONE [Suspect]
     Indication: B-CELL LYMPHOMA
     Dosage: FROM DAY 1-5
     Route: 048
  15. PREDNISONE [Suspect]
     Indication: DIFFUSE LARGE B-CELL LYMPHOMA
     Dosage: FROM DAY 1-5
     Route: 048
  16. PREDNISONE [Suspect]
     Indication: ANAPLASTIC LARGE CELL LYMPHOMA T- AND NULL-CELL TYPES
     Dosage: FROM DAY 1-5
     Route: 048
  17. RITUXIMAB [Suspect]
     Indication: PERIPHERAL T-CELL LYMPHOMA UNSPECIFIED
     Dosage: PRIOR TO CHMP CYCLE
     Route: 042
  18. RITUXIMAB [Suspect]
     Indication: B-CELL LYMPHOMA
     Dosage: PRIOR TO CHMP CYCLE
     Route: 042
  19. RITUXIMAB [Suspect]
     Indication: DIFFUSE LARGE B-CELL LYMPHOMA
     Dosage: PRIOR TO CHMP CYCLE
     Route: 042
  20. RITUXIMAB [Suspect]
     Indication: ANAPLASTIC LARGE CELL LYMPHOMA T- AND NULL-CELL TYPES
     Dosage: PRIOR TO CHMP CYCLE
     Route: 042

REACTIONS (25)
  - Leukopenia [Unknown]
  - Febrile neutropenia [Unknown]
  - Neuropathy peripheral [Unknown]
  - Metabolic disorder [Unknown]
  - Mediastinal disorder [Unknown]
  - Hypoaesthesia [Unknown]
  - Anaemia [Unknown]
  - Headache [Unknown]
  - Asthenia [Unknown]
  - Neutropenia [Unknown]
  - Thrombocytopenia [Unknown]
  - Pyrexia [Unknown]
  - Non-Hodgkin^s lymphoma [Unknown]
  - Diffuse large B-cell lymphoma [Unknown]
  - Diarrhoea [Unknown]
  - Constipation [Unknown]
  - Mouth ulceration [Unknown]
  - Nausea [Unknown]
  - Vomiting [Unknown]
  - Fatigue [Unknown]
  - Mucosal inflammation [Unknown]
  - Hypokalaemia [Unknown]
  - Respiratory disorder [Unknown]
  - Dyspnoea [Unknown]
  - Chest discomfort [Unknown]
